FAERS Safety Report 6904210-0 (Version None)
Quarter: 2010Q3

REPORT INFORMATION
  Report Type: 
  Country: None (occurrence: None)
  Receive Date: 20100804
  Receipt Date: 20090325
  Transmission Date: 20110219
  Serious: No
  Sender: FDA-Public Use
  Company Number: US-PFIZER INC-2009167051

PATIENT
  Sex: Female
  Weight: 88.5 kg

DRUGS (9)
  1. LYRICA [Suspect]
     Indication: FIBROMYALGIA
     Dosage: UNK
     Dates: start: 20080101
  2. OXYCONTIN [Concomitant]
     Dosage: UNK
  3. LUNESTA [Concomitant]
     Dosage: UNK
  4. PROZAC [Concomitant]
     Dosage: UNK
  5. PLAVIX [Concomitant]
     Dosage: UNK
  6. NORCO [Concomitant]
     Dosage: UNK
  7. PREMARIN [Concomitant]
     Dosage: UNK
  8. NEXIUM [Concomitant]
     Dosage: UNK
  9. ANALGESICS [Concomitant]
     Dosage: UNK

REACTIONS (10)
  - DIPLOPIA [None]
  - DIZZINESS [None]
  - FATIGUE [None]
  - MIGRAINE [None]
  - NAUSEA [None]
  - SOMNOLENCE [None]
  - TINNITUS [None]
  - VERTIGO [None]
  - VISION BLURRED [None]
  - VISUAL IMPAIRMENT [None]
